FAERS Safety Report 23004917 (Version 2)
Quarter: 2023Q4

REPORT INFORMATION
  Report Type: Spontaneous
  Country: IE (occurrence: IE)
  Receive Date: 20230929
  Receipt Date: 20231005
  Transmission Date: 20240110
  Serious: Yes (Other)
  Sender: FDA-Public Use
  Company Number: IE-ELI_LILLY_AND_COMPANY-IE202309005685

PATIENT
  Age: 39 Year
  Sex: Male

DRUGS (3)
  1. ZYPREXA [Suspect]
     Active Substance: OLANZAPINE
     Indication: Anxiety
     Dosage: UNK UNK, UNKNOWN
     Route: 065
     Dates: start: 2020
  2. ZYPREXA [Suspect]
     Active Substance: OLANZAPINE
     Indication: Depression
  3. ZYPREXA [Suspect]
     Active Substance: OLANZAPINE
     Indication: Dissociation

REACTIONS (13)
  - Libido disorder [Unknown]
  - Gastrooesophageal reflux disease [Unknown]
  - Hepatic steatosis [Unknown]
  - Swelling face [Unknown]
  - Suicidal ideation [Unknown]
  - Dyspepsia [Unknown]
  - Weight increased [Unknown]
  - Blood cholesterol increased [Unknown]
  - Abdominal distension [Unknown]
  - Metabolic disorder [Unknown]
  - Injury [Unknown]
  - Anhedonia [Unknown]
  - Drug withdrawal syndrome [Unknown]

NARRATIVE: CASE EVENT DATE: 20220101
